FAERS Safety Report 8322019-0 (Version None)
Quarter: 2012Q2

REPORT INFORMATION
  Report Type: 
  Country: None (occurrence: None)
  Receive Date: 20120426
  Receipt Date: 20120417
  Transmission Date: 20120825
  Serious: Yes (Hospitalization)
  Sender: FDA-Public Use
  Company Number: DSA_56241_2012

PATIENT
  Age: 86 Year
  Sex: Male

DRUGS (7)
  1. PERMIXON [Concomitant]
  2. ALFUZOSIN HCL [Concomitant]
  3. ATORVASTATIN [Concomitant]
  4. INDAPAMIDE [Concomitant]
  5. PREVISCAN /00789001/ (PREVISCAN - FLUIDIONE) (NOT SPECIFIED) [Suspect]
     Indication: ATRIAL FIBRILLATION
     Dosage: 20 MG QD ORAL
     Route: 048
     Dates: start: 20101001, end: 20111004
  6. FLAGYL [Suspect]
     Indication: PSEUDOMEMBRANOUS COLITIS
     Dosage: 500 MG TID ORAL
     Route: 048
     Dates: start: 20110917, end: 20110930
  7. LAMICTAL [Concomitant]

REACTIONS (4)
  - INTERNATIONAL NORMALISED RATIO INCREASED [None]
  - DRUG INTERACTION [None]
  - HYPOTHROMBINAEMIA [None]
  - INTERNATIONAL NORMALISED RATIO DECREASED [None]
